FAERS Safety Report 9482812 (Version 4)
Quarter: 2014Q1

REPORT INFORMATION
  Report Type: Report from Study
  Country: US (occurrence: US)
  Receive Date: 20130828
  Receipt Date: 20140103
  Transmission Date: 20141002
  Serious: Yes (Death, Hospitalization)
  Sender: FDA-Public Use
  Company Number: US-ACTELION-A-NJ2013-87499

PATIENT
  Age: 52 Year
  Sex: Male

DRUGS (2)
  1. VELETRI [Suspect]
     Indication: PULMONARY ARTERIAL HYPERTENSION
     Dosage: 90 NG/KG, PER MIN
     Route: 042
     Dates: start: 20111006
  2. COUMADIN [Concomitant]

REACTIONS (6)
  - Renal failure [Fatal]
  - Cardiac failure [Fatal]
  - Gout [Unknown]
  - Pulmonary arterial hypertension [Unknown]
  - Fluid overload [Unknown]
  - Fluid retention [Unknown]
